FAERS Safety Report 4507608-3 (Version None)
Quarter: 2004Q4

REPORT INFORMATION
  Report Type: 
  Country: None (occurrence: None)
  Receive Date: 20041118
  Receipt Date: 20041101
  Transmission Date: 20050328
  Serious: Yes (Other)
  Sender: FDA-Public Use
  Company Number: B0350408A

PATIENT
  Sex: Female

DRUGS (2)
  1. VINORELBINE TARTRATE [Suspect]
     Dosage: 30 MG/M2 / WEEKLY
  2. TRASTUZUMAB (TRASTUZUMAB) [Suspect]
     Dosage: SEE DOSAGE TEXT

REACTIONS (2)
  - CARDIOTOXICITY [None]
  - EJECTION FRACTION DECREASED [None]
